FAERS Safety Report 9438695 (Version 2)
Quarter: 2015Q1

REPORT INFORMATION
  Report Type: Report from Study
  Country: FR (occurrence: FR)
  Receive Date: 20130802
  Receipt Date: 20150204
  Transmission Date: 20150721
  Serious: Yes (Death, Hospitalization)
  Sender: FDA-Public Use
  Company Number: FR-PFIZER INC-2013226204

PATIENT
  Age: 81 Year
  Sex: Female
  Weight: 47 kg

DRUGS (17)
  1. TRANXENE T-TAB [Concomitant]
     Active Substance: CLORAZEPATE DIPOTASSIUM
     Dosage: 5 MG, 1X/DAY
  2. FLAGYL [Concomitant]
     Active Substance: METRONIDAZOLE\METRONIDAZOLE HYDROCHLORIDE
     Indication: DIVERTICULUM
     Dosage: 500 MG, 3X/DAY AS NEEDED
  3. TAHOR [Concomitant]
     Active Substance: ATORVASTATIN CALCIUM
     Dosage: 10 MG, 1X/DAY
  4. GYNDELTA [Concomitant]
     Dosage: 1 DF, 1X/DAY
  5. MOPRAL [Concomitant]
     Active Substance: OMEPRAZOLE SODIUM
     Dosage: 20 MG, 1X/DAY
  6. PRAXILENE [Concomitant]
     Active Substance: NAFRONYL
     Dosage: 2 TABLETS DAILY
  7. TIORFAN [Concomitant]
     Active Substance: RACECADOTRIL
     Indication: DIARRHOEA
     Dosage: 1 DF, 3X/DAY AS NEEDED
  8. TEMERIT [Concomitant]
     Active Substance: NEBIVOLOL
     Dosage: 2.5 MG, 1X/DAY
  9. MONURIL [Concomitant]
     Active Substance: FOSFOMYCIN SODIUM
     Dosage: 3 G IN POUCH, 1 POUCH WEEKLY
  10. SIROLIMUS. [Suspect]
     Active Substance: SIROLIMUS
     Indication: PROPHYLAXIS AGAINST TRANSPLANT REJECTION
     Dosage: 0.5 MG, 1X/DAY
     Route: 048
     Dates: start: 20070827
  11. KARDEGIC [Concomitant]
     Active Substance: ASPIRIN LYSINE
     Dosage: 75 MG, 1X/DAY
  12. TAVANIC [Concomitant]
     Active Substance: LEVOFLOXACIN
     Indication: DIVERTICULUM
     Dosage: 500 MG, 1X/DAY AS NEEDED
  13. NATISPRAY FORT [Concomitant]
     Indication: CHEST PAIN
     Dosage: 2 PUFFS UNDER THE TONGUE IN CASE OF THORACIC PAIN
     Route: 060
  14. STILNOX [Concomitant]
     Active Substance: ZOLPIDEM TARTRATE
     Indication: INSOMNIA
     Dosage: 10 MG, 1X/DAY AS NEEDED
  15. SOLUPRED [Suspect]
     Active Substance: PREDNISOLONE
     Dosage: 5 MG, 1X/DAY
  16. COVERSYL [Concomitant]
     Active Substance: PERINDOPRIL
     Dosage: 1.25 MG, 1X/DAY
  17. IMODIUM [Concomitant]
     Active Substance: LOPERAMIDE HYDROCHLORIDE
     Indication: DIARRHOEA
     Dosage: 1 TABLET AFTER EACH LIQUID STOOL (6 TABLETS MAXIMUM)

REACTIONS (5)
  - Sepsis [Fatal]
  - Adenocarcinoma of colon [Fatal]
  - Lung disorder [Fatal]
  - Diverticulitis [Not Recovered/Not Resolved]
  - Respiratory distress [Fatal]

NARRATIVE: CASE EVENT DATE: 20120903
